FAERS Safety Report 4468868-0 (Version None)
Quarter: 2004Q4

REPORT INFORMATION
  Report Type: 
  Country: None (occurrence: None)
  Receive Date: 20041008
  Receipt Date: 20040928
  Transmission Date: 20050328
  Serious: Yes (Death, Life-Threatening)
  Sender: FDA-Public Use
  Company Number: GB-JNJFOC-20040909030

PATIENT
  Sex: Male

DRUGS (7)
  1. REMICADE [Suspect]
     Indication: RHEUMATOID ARTHRITIS
     Route: 042
  2. PREDNISOLONE [Concomitant]
  3. FOSAMAX [Concomitant]
  4. FOLIC ACID [Concomitant]
  5. CALCICHEW [Concomitant]
  6. LANSOPRAZOLE [Concomitant]
  7. PERINDOPRIL [Concomitant]

REACTIONS (1)
  - PULMONARY FIBROSIS [None]
